FAERS Safety Report 4630812-0 (Version None)
Quarter: 2005Q1

REPORT INFORMATION
  Report Type: 
  Country: None (occurrence: None)
  Receive Date: 20050331
  Receipt Date: 20050331
  Transmission Date: 20050727
  Serious: No
  Sender: FDA-Public Use
  Company Number: None

PATIENT
  Age: 69 Year
  Sex: Male
  Weight: 81.6475 kg

DRUGS (1)
  1. EDTA    625 MG     WONDER LABORATORIES [Suspect]
     Indication: VASCULAR CALCIFICATION
     Dosage: 1 CAPSULE    TWICE DAILY   ORAL
     Route: 048
     Dates: start: 20050314, end: 20050328

REACTIONS (1)
  - HAEMORRHAGE URINARY TRACT [None]
